FAERS Safety Report 18921450 (Version 1)
Quarter: 2021Q1

REPORT INFORMATION
  Report Type: Spontaneous
  Country: US (occurrence: US)
  Receive Date: 20210219
  Receipt Date: 20210219
  Transmission Date: 20210420
  Serious: Yes (Disabling)
  Sender: FDA-Public Use
  Company Number: None

PATIENT
  Age: 45 Year
  Sex: Female
  Weight: 83.91 kg

DRUGS (11)
  1. MEDTRONIC PAIN PUMP [Concomitant]
     Active Substance: DEVICE
     Dates: start: 20160101
  2. PROTONIX [Concomitant]
     Active Substance: PANTOPRAZOLE SODIUM
  3. GLUCOSAMINE [Concomitant]
     Active Substance: GLUCOSAMINE
  4. CREON [Concomitant]
     Active Substance: PANCRELIPASE AMYLASE\PANCRELIPASE LIPASE\PANCRELIPASE PROTEASE
  5. HYDROMORPHONE [Suspect]
     Active Substance: HYDROMORPHONE
     Indication: PANCREATITIS CHRONIC
  6. SUCRAFATE [Concomitant]
     Active Substance: SUCRALFATE
  7. VITAMINS [Concomitant]
     Active Substance: VITAMINS
  8. CALCIUM [Concomitant]
     Active Substance: CALCIUM
  9. ESTRADIOL. [Concomitant]
     Active Substance: ESTRADIOL
  10. VIT D [Concomitant]
     Active Substance: VITAMIN D NOS
  11. PROBIOTIC [Concomitant]
     Active Substance: PROBIOTICS NOS

REACTIONS (2)
  - Back pain [None]
  - Implant site pain [None]

NARRATIVE: CASE EVENT DATE: 20200602
